FAERS Safety Report 9324508 (Version 1)
Quarter: 2013Q2

REPORT INFORMATION
  Report Type: Spontaneous
  Country: US (occurrence: None)
  Receive Date: 20130529
  Receipt Date: 20130529
  Transmission Date: 20140414
  Serious: Yes (Other)
  Sender: FDA-Public Use
  Company Number: 001539297A

PATIENT
  Age: 59 Year
  Sex: Female

DRUGS (3)
  1. MB ANTIOXIDANT DAY CREME SPF 20 [Suspect]
     Dosage: ONCE DAILY DERMAL
     Dates: start: 20130502, end: 20130510
  2. MB SKIN BRIGHTENING DECOLLETE + NECK TREATMENT SPF15 [Suspect]
     Dosage: ONE DAILY DERMAL
     Dates: start: 20130502, end: 20130510
  3. BLOOD PRESSURE PILLS [Concomitant]

REACTIONS (4)
  - Rash [None]
  - Dyspnoea [None]
  - Urticaria [None]
  - Anaphylactic reaction [None]
